FAERS Safety Report 9227895 (Version 2)
Quarter: 2013Q3

REPORT INFORMATION
  Report Type: Report from Study
  Country: JP (occurrence: JP)
  Receive Date: 20130412
  Receipt Date: 20130831
  Transmission Date: 20140515
  Serious: Yes (Death)
  Sender: FDA-Public Use
  Company Number: JP-UCBSA-082699

PATIENT
  Age: 76 Year
  Sex: Male

DRUGS (9)
  1. E KEPPRA [Suspect]
     Indication: EPILEPSY
     Route: 048
     Dates: start: 20130129, end: 20130311
  2. ISOBIDE [Concomitant]
     Indication: BRAIN NEOPLASM
     Dosage: DAILY DOSE 90 ML
     Route: 048
     Dates: start: 20130129, end: 20130311
  3. DECADRON [Concomitant]
     Indication: BRAIN NEOPLASM
     Dosage: DAILY DOSE: 2 MG
     Route: 048
     Dates: start: 20130129, end: 20130311
  4. DEPAKENE-R [Concomitant]
     Indication: EPILEPSY
     Dosage: DAILY DOSE: 100 MG
     Route: 048
     Dates: start: 20130129, end: 20130311
  5. CODEINE PHOSPHATE HYDRATE [Concomitant]
     Indication: LUNG NEOPLASM MALIGNANT
     Dosage: DAILY DOSE: 60 MG
     Route: 048
     Dates: end: 20130311
  6. AUZEI [Concomitant]
     Indication: LUNG NEOPLASM MALIGNANT
     Dosage: DAILY DOSE: 90 MG
     Route: 048
     Dates: end: 20130311
  7. TRANSAMIN [Concomitant]
     Indication: LUNG NEOPLASM MALIGNANT
     Dosage: DAILY DOSE: 750 MG
     Route: 048
     Dates: end: 20130311
  8. CEFTRIAXONE SODIUM HYDRATE [Concomitant]
     Dosage: 2 G DAILY
     Route: 042
     Dates: start: 20130307, end: 20130313
  9. DEXART [Concomitant]
     Dosage: 1.65 MG DAILY
     Route: 042
     Dates: start: 20130309, end: 20130313

REACTIONS (1)
  - Lung neoplasm malignant [Fatal]
